FAERS Safety Report 15993633 (Version 4)
Quarter: 2019Q1

REPORT INFORMATION
  Report Type: Report from Study
  Country: US (occurrence: US)
  Receive Date: 20190222
  Receipt Date: 20190312
  Transmission Date: 20190418
  Serious: No
  Sender: FDA-Public Use
  Company Number: PHEH2019US008086

PATIENT
  Age: 72 Year
  Sex: Female
  Weight: 79.37 kg

DRUGS (1)
  1. GLATOPA [Suspect]
     Active Substance: GLATIRAMER ACETATE
     Indication: MULTIPLE SCLEROSIS
     Dosage: 20 MG, QD (ROTATES TO ALL SITES)
     Route: 058
     Dates: start: 20190214

REACTIONS (5)
  - Influenza like illness [Not Recovered/Not Resolved]
  - Injection site pain [Recovered/Resolved]
  - Night sweats [Not Recovered/Not Resolved]
  - Chills [Not Recovered/Not Resolved]
  - Nasopharyngitis [Not Recovered/Not Resolved]

NARRATIVE: CASE EVENT DATE: 20190214
